FAERS Safety Report 6177636-3 (Version None)
Quarter: 2009Q2

REPORT INFORMATION
  Report Type: 
  Country: None (occurrence: None)
  Receive Date: 20090501
  Receipt Date: 20090501
  Transmission Date: 20091009
  Serious: Yes (Other)
  Sender: FDA-Public Use
  Company Number: None

PATIENT
  Sex: Male
  Weight: 77.5 kg

DRUGS (8)
  1. EVEROLIMUS (RAD001) NOVARTIS [Suspect]
     Indication: MANTLE CELL LYMPHOMA
     Dosage: 5 MG EVERY OTHER DAY P.O.
     Route: 048
     Dates: start: 20080711, end: 20090428
  2. VELCADE [Suspect]
     Indication: MANTLE CELL LYMPHOMA
     Dosage: 1.3 MG ONCE DAY 1,4,8,11 AT A 21 DAY CYCLE IV
     Route: 042
     Dates: start: 20080708, end: 20090416
  3. GLUCOTROL [Concomitant]
  4. GLUCOPHAGE [Concomitant]
  5. ACYCLOVIR [Concomitant]
  6. POTASSIUM PHOSPHATES [Concomitant]
  7. SENNOSIDES/DOCUSATES SODIUM [Concomitant]
  8. ROSUVASTATIN CALCIUM [Concomitant]

REACTIONS (5)
  - DYSPNOEA EXERTIONAL [None]
  - HEART SOUNDS ABNORMAL [None]
  - LEFT ATRIAL DILATATION [None]
  - QRS AXIS ABNORMAL [None]
  - SINUS TACHYCARDIA [None]
